FAERS Safety Report 17806062 (Version 5)
Quarter: 2023Q2

REPORT INFORMATION
  Report Type: Spontaneous
  Country: AU (occurrence: AU)
  Receive Date: 20200520
  Receipt Date: 20230428
  Transmission Date: 20230721
  Serious: Yes (Other)
  Sender: FDA-Public Use
  Company Number: AU-ACCORD-182094

PATIENT
  Sex: Female

DRUGS (3)
  1. MONTELUKAST [Suspect]
     Active Substance: MONTELUKAST SODIUM
     Indication: Mast cell activation syndrome
     Dosage: 1 DOSE PER 24HR
     Route: 065
  2. CROMOLYN SODIUM [Suspect]
     Active Substance: CROMOLYN SODIUM
     Indication: Mast cell activation syndrome
     Route: 065
  3. NIZATIDINE [Concomitant]
     Active Substance: NIZATIDINE
     Dosage: 300 MG DAILY

REACTIONS (5)
  - Wheezing [Recovering/Resolving]
  - Pruritus [Recovering/Resolving]
  - Drug ineffective for unapproved indication [Unknown]
  - Diarrhoea [Recovering/Resolving]
  - Flushing [Unknown]
